FAERS Safety Report 18918857 (Version 2)
Quarter: 2021Q1

REPORT INFORMATION
  Report Type: Spontaneous
  Country: IE (occurrence: IE)
  Receive Date: 20210220
  Receipt Date: 20210310
  Transmission Date: 20210420
  Serious: Yes (Death)
  Sender: FDA-Public Use
  Company Number: IE-ROCHE-2773981

PATIENT
  Age: 66 Year
  Sex: Female
  Weight: 76 kg

DRUGS (4)
  1. ROACTEMRA [Suspect]
     Active Substance: TOCILIZUMAB
     Indication: COVID-19
     Dosage: 1 DOSE; FORM STRENGTH: 20 MG/ML
     Route: 042
     Dates: start: 20210119
  2. DEXAMETHASONE. [Concomitant]
     Active Substance: DEXAMETHASONE
     Dosage: EQUIVALENT TO 8MG/2ML OF DEXAMETHASONE SOD PHOS
     Route: 042
     Dates: start: 20210117, end: 20210126
  3. APIXABAN [Concomitant]
     Active Substance: APIXABAN
  4. DEXAMETHASONE. [Concomitant]
     Active Substance: DEXAMETHASONE
     Route: 042
     Dates: start: 20210128, end: 20210201

REACTIONS (3)
  - Off label use [Fatal]
  - Intentional product use issue [Fatal]
  - Staphylococcal bacteraemia [Fatal]

NARRATIVE: CASE EVENT DATE: 20210201
